FAERS Safety Report 5146756-4 (Version None)
Quarter: 2006Q4

REPORT INFORMATION
  Report Type: 
  Country: None (occurrence: None)
  Receive Date: 20061102
  Receipt Date: 20061018
  Transmission Date: 20070319
  Serious: Yes (Other)
  Sender: FDA-Public Use
  Company Number: 2006BI015188

PATIENT
  Age: 51 Year
  Sex: Female

DRUGS (1)
  1. AVONEX [Suspect]
     Indication: MULTIPLE SCLEROSIS
     Dosage: 30 UG; QW; IM
     Route: 030
     Dates: start: 20000101, end: 20000101

REACTIONS (4)
  - BRAIN NEOPLASM [None]
  - CATARACT OPERATION [None]
  - OCULAR RETROBULBAR HAEMORRHAGE [None]
  - POST PROCEDURAL COMPLICATION [None]
